FAERS Safety Report 9298983 (Version 1)
Quarter: 2013Q2

REPORT INFORMATION
  Report Type: Spontaneous
  Country: US (occurrence: US)
  Receive Date: 20130520
  Receipt Date: 20130520
  Transmission Date: 20140414
  Serious: No
  Sender: FDA-Public Use
  Company Number: US-SANOFI-AVENTIS-2013SA020590

PATIENT
  Sex: Female

DRUGS (2)
  1. APIDRA SOLOSTAR [Suspect]
     Dosage: DOSE- 2 TO 5 UNITS PER DAY AS NEEDED
  2. SOLOSTAR [Suspect]

REACTIONS (1)
  - Weight increased [Unknown]
